FAERS Safety Report 9339273 (Version 1)
Quarter: 2013Q2

REPORT INFORMATION
  Report Type: Spontaneous
  Country: US (occurrence: US)
  Receive Date: 20130610
  Receipt Date: 20130610
  Transmission Date: 20140414
  Serious: No
  Sender: FDA-Public Use
  Company Number: US-009507513-1306USA002910

PATIENT
  Age: 70 Year
  Sex: Female

DRUGS (3)
  1. JANUVIA [Suspect]
     Indication: DIABETES MELLITUS
     Dosage: 100 MG, QD 1 A DAY PILL 100 MG
     Route: 048
     Dates: start: 201209, end: 201305
  2. GLIPIZIDE [Concomitant]
  3. LOSARTAN POTASSIUM TABLETS [Concomitant]
     Route: 048

REACTIONS (1)
  - Pain in extremity [Unknown]
